FAERS Safety Report 4390180-9 (Version None)
Quarter: 2004Q3

REPORT INFORMATION
  Report Type: 
  Country: None (occurrence: None)
  Receive Date: 20040706
  Receipt Date: 20040625
  Transmission Date: 20050211
  Serious: Yes (Hospitalization)
  Sender: FDA-Public Use
  Company Number: 12615274

PATIENT
  Age: 62 Year
  Sex: Female

DRUGS (3)
  1. LAMIVUDINE [Suspect]
     Indication: HIV INFECTION
     Dates: start: 20040514
  2. STAVUDINE [Suspect]
     Indication: HIV INFECTION
     Dates: start: 20040514
  3. NEVIRAPINE [Suspect]
     Indication: HIV INFECTION
     Dates: start: 20040514

REACTIONS (6)
  - ARTHRALGIA [None]
  - CHEILITIS [None]
  - EYE PRURITUS [None]
  - HYPERSENSITIVITY [None]
  - RASH MACULO-PAPULAR [None]
  - SWELLING FACE [None]
